FAERS Safety Report 9931040 (Version 3)
Quarter: 2014Q1

REPORT INFORMATION
  Report Type: Spontaneous
  Country: JP (occurrence: JP)
  Receive Date: 20140227
  Receipt Date: 20140312
  Transmission Date: 20141002
  Serious: Yes (Other)
  Sender: FDA-Public Use
  Company Number: PHHY2014JP008594

PATIENT
  Age: 81 Year
  Sex: Male

DRUGS (10)
  1. ULTIBRO BREEZHALER [Suspect]
     Indication: CHRONIC OBSTRUCTIVE PULMONARY DISEASE
     Dosage: 1 DF, QD
     Route: 055
     Dates: start: 20131210, end: 20140107
  2. CLEANAL [Concomitant]
     Indication: CHRONIC OBSTRUCTIVE PULMONARY DISEASE
     Dosage: 1200 MG, UNK
     Route: 048
     Dates: start: 20131224
  3. NEXIUM 1-2-3 [Concomitant]
     Indication: GASTROOESOPHAGEAL REFLUX DISEASE
     Dosage: 20 MG, UNK
     Route: 048
     Dates: start: 20130115
  4. AMLODIPINE BESILATE [Concomitant]
     Indication: HYPERTENSION
     Dosage: 5 MG, UNK
     Route: 048
     Dates: start: 20130115
  5. AMLODIPINE BESILATE [Concomitant]
     Dosage: 10 MG, UNK
     Route: 048
  6. RIFADIN [Concomitant]
     Indication: TUBERCULOUS PLEURISY
     Dosage: 300 MG, UNK
     Route: 048
     Dates: start: 20130528, end: 20140204
  7. NEOISCOTIN [Concomitant]
     Indication: TUBERCULOUS PLEURISY
     Dosage: 1 G, UNK
     Route: 048
     Dates: start: 20130625, end: 20140204
  8. ETHAMBUTOL HYDROCHLORIDE [Concomitant]
     Indication: TUBERCULOUS PLEURISY
     Dosage: 750 MG, UNK
     Route: 048
     Dates: start: 20130716, end: 20140204
  9. PYDOXAL [Concomitant]
     Indication: PERIPHERAL SENSORY NEUROPATHY
     Dosage: 30 MG, UNK
     Dates: start: 20130625, end: 20140204
  10. PREMINENT [Concomitant]
     Indication: HYPERTENSION
     Dosage: 1 DF, UNK
     Route: 048
     Dates: start: 20130604

REACTIONS (3)
  - Rhabdomyolysis [Recovered/Resolved]
  - Myalgia [Unknown]
  - Chromaturia [Unknown]
